FAERS Safety Report 15712900 (Version 1)
Quarter: 2018Q4

REPORT INFORMATION
  Report Type: Spontaneous
  Country: US (occurrence: US)
  Receive Date: 20181211
  Receipt Date: 20181211
  Transmission Date: 20190205
  Serious: No
  Sender: FDA-Public Use
  Company Number: None

PATIENT
  Age: 72 Year
  Sex: Female
  Weight: 93.6 kg

DRUGS (1)
  1. GABAPENTIN. [Suspect]
     Active Substance: GABAPENTIN
     Indication: NERVE COMPRESSION
     Dosage: ?          QUANTITY:1 CAPSULE(S);OTHER FREQUENCY:EVENING;?
     Route: 048
     Dates: start: 20181207, end: 20181210

REACTIONS (2)
  - Dizziness [None]
  - Injury [None]

NARRATIVE: CASE EVENT DATE: 20181210
